FAERS Safety Report 16278521 (Version 4)
Quarter: 2019Q2

REPORT INFORMATION
  Report Type: Report from Study
  Country: US (occurrence: US)
  Receive Date: 20190506
  Receipt Date: 20190617
  Transmission Date: 20190711
  Serious: No
  Sender: FDA-Public Use
  Company Number: US-ACTELION-A-NJ2019-189837

PATIENT
  Sex: Female
  Weight: 80.73 kg

DRUGS (7)
  1. WARFARIN [Concomitant]
     Active Substance: WARFARIN
  2. LETAIRIS [Concomitant]
     Active Substance: AMBRISENTAN
  3. ADEMPAS [Suspect]
     Active Substance: RIOCIGUAT
     Indication: PRODUCT USED FOR UNKNOWN INDICATION
     Route: 065
  4. DILTIAZEM. [Concomitant]
     Active Substance: DILTIAZEM
  5. UPTRAVI [Suspect]
     Active Substance: SELEXIPAG
     Indication: PULMONARY ARTERIAL HYPERTENSION
     Dosage: 600 MCG, BID
     Route: 048
  6. UPTRAVI [Suspect]
     Active Substance: SELEXIPAG
     Dosage: 1000 MCG, BID
     Route: 048
  7. UPTRAVI [Suspect]
     Active Substance: SELEXIPAG
     Dosage: 1000 MCG QAM, 1200 MCG QPM
     Route: 048

REACTIONS (15)
  - Atrial fibrillation [Unknown]
  - Back pain [Unknown]
  - Oedema [Unknown]
  - Gait disturbance [Unknown]
  - Heart rate increased [Unknown]
  - Dry mouth [Unknown]
  - Dyspnoea [Unknown]
  - Malaise [Unknown]
  - Myalgia [Unknown]
  - Pain in extremity [Unknown]
  - Faeces soft [Unknown]
  - Fatigue [Unknown]
  - Headache [Unknown]
  - Peripheral swelling [Unknown]
  - Heart rate irregular [Unknown]
